FAERS Safety Report 10259810 (Version 1)
Quarter: 2014Q2

REPORT INFORMATION
  Report Type: Spontaneous
  Country: CA (occurrence: CA)
  Receive Date: 20140625
  Receipt Date: 20140625
  Transmission Date: 20141212
  Serious: Yes (Hospitalization)
  Sender: FDA-Public Use
  Company Number: CA-GLAXOSMITHKLINE-A1041410A

PATIENT
  Age: 51 Year
  Sex: Female

DRUGS (6)
  1. VOTRIENT [Suspect]
     Indication: SARCOMA
     Dosage: 800MG PER DAY
     Route: 065
     Dates: start: 201302, end: 201303
  2. BLOOD PRESSURE MEDICATION [Concomitant]
     Indication: PRODUCT USED FOR UNKNOWN INDICATION
     Route: 065
  3. AMLODIPINE [Concomitant]
  4. PLAVIX [Concomitant]
  5. AMITRIPTYLINE [Concomitant]
  6. CLONAZEPAM [Concomitant]

REACTIONS (26)
  - Palpitations [Recovered/Resolved]
  - Heart rate increased [Recovered/Resolved]
  - Anxiety [Unknown]
  - Headache [Recovering/Resolving]
  - Pyrexia [Unknown]
  - Chills [Unknown]
  - Hyperhidrosis [Unknown]
  - Nausea [Unknown]
  - Pain [Unknown]
  - Fatigue [Not Recovered/Not Resolved]
  - Insomnia [Recovering/Resolving]
  - Hypertension [Recovered/Resolved with Sequelae]
  - Diarrhoea [Recovered/Resolved with Sequelae]
  - Nasopharyngitis [Unknown]
  - Influenza [Unknown]
  - Heart rate decreased [Unknown]
  - Peripheral swelling [Unknown]
  - Pain in extremity [Unknown]
  - Nausea [Unknown]
  - Cough [Unknown]
  - Myalgia [Recovering/Resolving]
  - Hypothyroidism [Unknown]
  - Thyroid function test abnormal [Unknown]
  - Drug intolerance [Unknown]
  - Adverse drug reaction [Unknown]
  - Malignant neoplasm progression [Unknown]
